FAERS Safety Report 6995993-2 (Version None)
Quarter: 2010Q3

REPORT INFORMATION
  Report Type: 
  Country: None (occurrence: None)
  Receive Date: 20100918
  Receipt Date: 20081125
  Transmission Date: 20110219
  Serious: No
  Sender: FDA-Public Use
  Company Number: US-WYE-H06969108

PATIENT
  Sex: Female
  Weight: 83.54 kg

DRUGS (4)
  1. EFFEXOR XR [Suspect]
     Indication: DEPRESSION
     Route: 048
     Dates: start: 20030101
  2. EFFEXOR XR [Suspect]
     Dosage: TRIED TO TAPER OFF FOR 7 DAYS
     Route: 048
  3. EFFEXOR XR [Suspect]
     Route: 048
     Dates: end: 20081121
  4. PRISTIQ [Suspect]
     Indication: DEPRESSION
     Route: 048
     Dates: start: 20081122

REACTIONS (10)
  - BALANCE DISORDER [None]
  - DIZZINESS [None]
  - DRUG WITHDRAWAL SYNDROME [None]
  - EYE IRRITATION [None]
  - FEELING ABNORMAL [None]
  - IRRITABILITY [None]
  - MALAISE [None]
  - NAUSEA [None]
  - RASH MACULO-PAPULAR [None]
  - VISION BLURRED [None]
